FAERS Safety Report 23283946 (Version 3)
Quarter: 2024Q1

REPORT INFORMATION
  Report Type: Other
  Country: IN (occurrence: None)
  Receive Date: 20231211
  Receipt Date: 20240125
  Transmission Date: 20240409
  Serious: Yes (Death, Hospitalization)
  Sender: FDA-Public Use
  Company Number: IN-ROCHE-3469471

PATIENT
  Age: 47 Year
  Sex: Male

DRUGS (1)
  1. TECENTRIQ [Suspect]
     Active Substance: ATEZOLIZUMAB
     Indication: Hepatocellular carcinoma
     Route: 042
     Dates: start: 20231030

REACTIONS (5)
  - Vomiting [Unknown]
  - Loss of consciousness [Unknown]
  - Frequent bowel movements [Unknown]
  - Upper gastrointestinal haemorrhage [Unknown]
  - Blood glucose decreased [Fatal]

NARRATIVE: CASE EVENT DATE: 20231118
